FAERS Safety Report 5820208-8 (Version None)
Quarter: 2008Q3

REPORT INFORMATION
  Report Type: 
  Country: None (occurrence: None)
  Receive Date: 20080724
  Receipt Date: 20080721
  Transmission Date: 20090109
  Serious: Yes (Life-Threatening)
  Sender: FDA-Public Use
  Company Number: PHHY2008AU14610

PATIENT
  Age: 5 Year

DRUGS (1)
  1. RITALIN [Suspect]

REACTIONS (2)
  - ADVERSE EVENT [None]
  - DYSPNOEA [None]
